FAERS Safety Report 5133244-4 (Version None)
Quarter: 2006Q4

REPORT INFORMATION
  Report Type: 
  Country: None (occurrence: None)
  Receive Date: 20061018
  Receipt Date: 20061005
  Transmission Date: 20070319
  Serious: Yes (Death, Life-Threatening, Hospitalization)
  Sender: FDA-Public Use
  Company Number: 2006104004

PATIENT
  Age: 75 Year
  Sex: Male
  Weight: 47.5 kg

DRUGS (13)
  1. VFEND [Suspect]
     Dosage: 600 MG (2 IN 1 D), ORAL
     Route: 048
     Dates: start: 20060824, end: 20060825
  2. NOVORAPID (INSULIN ASPART) [Suspect]
     Dosage: 22 UNITS (3 IN 1 D), SUBCUTANEOUS
     Route: 058
     Dates: start: 20060713
  3. HUMULIN N [Suspect]
     Dosage: 8 UNITS (1 IN 1 D), SUBCUTANEOUS
     Route: 058
     Dates: start: 20060713
  4. SEREVENT [Concomitant]
  5. CLARITHROMYCIN [Concomitant]
  6. SULFAMETHOXAZOLE + TRIMETHOPRIM [Concomitant]
  7. C-PARA (VITAMINS NOS) [Concomitant]
  8. MICAFUNGIN [Concomitant]
  9. MARZULENE S (LEVOGLUTAMIDE, SODUIM GUALENATE) [Concomitant]
  10. MAGNESIUM OXIDE [Concomitant]
  11. PANTOSIN (PANTETHINE) [Concomitant]
  12. NEUROVITAN (CYANOCOBALAMIN, OCTOTIAMINE, PYRIDOXINE HYDROCHLORIDE, RIB [Concomitant]
  13. AMINO ACIDS NOS/CARBOHYDRATES NOS/ELECTROLYTES NOS/LIPIDS NOS (AMINO A [Concomitant]

REACTIONS (5)
  - ASPERGILLOSIS [None]
  - BLOOD GLUCOSE INCREASED [None]
  - CARDIAC FAILURE ACUTE [None]
  - CARDIO-RESPIRATORY ARREST [None]
  - PYREXIA [None]
